FAERS Safety Report 9729680 (Version 2)
Quarter: 2013Q4

REPORT INFORMATION
  Report Type: Spontaneous
  Country: GB (occurrence: None)
  Receive Date: 20131203
  Receipt Date: 20131213
  Transmission Date: 20140711
  Serious: Yes (Life-Threatening, Hospitalization, Other)
  Sender: FDA-Public Use
  Company Number: AUR-APL-2013-09816

PATIENT
  Age: 68 Year
  Sex: Female

DRUGS (11)
  1. CLOPIDOGREL [Suspect]
     Indication: PERIPHERAL VASCULAR DISORDER
     Route: 048
     Dates: start: 2011, end: 20131108
  2. NAPROXEN [Suspect]
     Indication: BACK PAIN
     Dosage: 750 MG (250 MG, 1 IN 1 D), ORAL
     Route: 048
     Dates: start: 20131018, end: 20131108
  3. ADALAT LA (NIFEDIPINE) [Concomitant]
  4. ALENDRONIC ACID (ALENDRONIC ACID) [Concomitant]
  5. ATORVASTATIN (ATPRVASATIN) [Concomitant]
  6. BENDROFLUMETHIAZIDE (BENDROLUMETHIAZIDE) [Concomitant]
  7. CALCIUM CARBONATE (CALCIUM CARBONATE) (CALCIUM CARBONATE) [Concomitant]
  8. CARBOMER (CARBOMER) [Concomitant]
  9. CHOLECALCIFEROL (CHOLECALCIFEROL) [Concomitant]
  10. MACROGOL (MARCROGOL) [Concomitant]
  11. SALBUTAMOL (SALBUTAMOL) [Concomitant]

REACTIONS (7)
  - Anaemia [None]
  - Gastric ulcer haemorrhage [None]
  - Oesophagitis [None]
  - Duodenitis [None]
  - Wound secretion [None]
  - Haematemesis [None]
  - Haemorrhagic anaemia [None]
